FAERS Safety Report 7986116-1 (Version None)
Quarter: 2011Q4

REPORT INFORMATION
  Report Type: 
  Country: None (occurrence: None)
  Receive Date: 20111216
  Receipt Date: 20110707
  Transmission Date: 20120403
  Serious: No
  Sender: FDA-Public Use
  Company Number: US-BRISTOL-MYERS SQUIBB COMPANY-15859549

PATIENT
  Age: 33 Year
  Sex: Female

DRUGS (3)
  1. ABILIFY [Suspect]
     Indication: BIPOLAR DISORDER
     Dosage: REDUCED TO 2.5 MG
     Route: 048
     Dates: start: 20101101
  2. LAMICTAL [Concomitant]
  3. CYMBALTA [Concomitant]

REACTIONS (1)
  - PREGNANCY [None]
